FAERS Safety Report 5650243-4 (Version None)
Quarter: 2008Q1

REPORT INFORMATION
  Report Type: 
  Country: None (occurrence: None)
  Receive Date: 20080303
  Receipt Date: 20080214
  Transmission Date: 20080703
  Serious: Yes (Life-Threatening)
  Sender: FDA-Public Use
  Company Number: S08-ITA-00253-01

PATIENT
  Age: 83 Year
  Sex: Male

DRUGS (4)
  1. MEMANTINE HCL [Suspect]
     Indication: DEMENTIA ALZHEIMER'S TYPE
     Dosage: 20 MG QD;PO
     Route: 048
     Dates: start: 20070504, end: 20071008
  2. METFORMIN HCL [Concomitant]
  3. RAMIPRIL [Concomitant]
  4. TRAZODONE HCL [Concomitant]

REACTIONS (8)
  - BONE MARROW TOXICITY [None]
  - CONDITION AGGRAVATED [None]
  - ERYTHROPENIA [None]
  - INFLUENZA [None]
  - LEUKOPENIA [None]
  - MYOCARDIAL INFARCTION [None]
  - PULMONARY EMBOLISM [None]
  - THROMBOCYTOPENIA [None]
